FAERS Safety Report 20814454 (Version 4)
Quarter: 2024Q2

REPORT INFORMATION
  Report Type: Report from Study
  Country: US (occurrence: US)
  Receive Date: 20220511
  Receipt Date: 20240401
  Transmission Date: 20240715
  Serious: Yes (Hospitalization)
  Sender: FDA-Public Use
  Company Number: US-ABBVIE-22K-163-4267436-00

PATIENT
  Sex: Male

DRUGS (5)
  1. SKYRIZI [Suspect]
     Active Substance: RISANKIZUMAB-RZAA
     Indication: Psoriasis
     Route: 058
  2. SKYRIZI [Suspect]
     Active Substance: RISANKIZUMAB-RZAA
     Indication: Psoriatic arthropathy
     Route: 058
     Dates: start: 20221022
  3. PFIZER-BIONTECH COVID-19 VACCINE [Concomitant]
     Active Substance: TOZINAMERAN
     Indication: COVID-19 immunisation
     Dosage: 1ST DOSE
     Route: 030
     Dates: start: 20210318, end: 20210318
  4. PFIZER-BIONTECH COVID-19 VACCINE [Concomitant]
     Active Substance: TOZINAMERAN
     Indication: COVID-19 immunisation
     Dosage: 2ND DOSE
     Route: 030
     Dates: start: 20210406, end: 20210406
  5. PFIZER-BIONTECH COVID-19 VACCINE [Concomitant]
     Active Substance: TOZINAMERAN
     Indication: COVID-19 immunisation
     Dosage: 3RD DOSE
     Route: 030
     Dates: start: 20211220, end: 20211220

REACTIONS (8)
  - Blood glucose abnormal [Not Recovered/Not Resolved]
  - Nasopharyngitis [Unknown]
  - Oropharyngeal pain [Unknown]
  - Productive cough [Unknown]
  - Nasal congestion [Unknown]
  - Rhinorrhoea [Unknown]
  - Nasal obstruction [Unknown]
  - Polydipsia [Unknown]
